FAERS Safety Report 8211012-4 (Version None)
Quarter: 2012Q1

REPORT INFORMATION
  Report Type: 
  Country: None (occurrence: None)
  Receive Date: 20120315
  Receipt Date: 20120308
  Transmission Date: 20120608
  Serious: Yes (Death, Hospitalization)
  Sender: FDA-Public Use
  Company Number: PHHY2011US89161

PATIENT
  Age: 48 Year
  Sex: Male

DRUGS (3)
  1. ANTI-THYMOCYTE GLOBULIN RABBIT NOS [Concomitant]
     Dosage: 5 DOSES
  2. MYCOPHENOLATE MOFETIL [Concomitant]
     Indication: RENAL TRANSPLANT
     Dosage: 2 G, UNK
  3. CYCLOSPORINE [Suspect]
     Indication: RENAL TRANSPLANT

REACTIONS (2)
  - FEBRILE NEUTROPENIA [None]
  - SUDDEN DEATH [None]
